FAERS Safety Report 13758506 (Version 1)
Quarter: 2017Q3

REPORT INFORMATION
  Report Type: Spontaneous
  Country: US (occurrence: US)
  Receive Date: 20170717
  Receipt Date: 20170717
  Transmission Date: 20171127
  Serious: No
  Sender: FDA-Public Use
  Company Number: US-ALEXION PHARMACEUTICALS INC.-A201707834

PATIENT
  Sex: Male

DRUGS (1)
  1. KANUMA [Suspect]
     Active Substance: SEBELIPASE ALFA
     Indication: PRODUCT USED FOR UNKNOWN INDICATION
     Route: 042

REACTIONS (5)
  - Blood triglycerides increased [Unknown]
  - Non-high-density lipoprotein cholesterol increased [Unknown]
  - Total cholesterol/HDL ratio increased [Unknown]
  - High density lipoprotein decreased [Unknown]
  - Blood cholesterol increased [Unknown]
